FAERS Safety Report 14993625 (Version 1)
Quarter: 2018Q2

REPORT INFORMATION
  Report Type: Spontaneous
  Country: CN (occurrence: CN)
  Receive Date: 20180611
  Receipt Date: 20180611
  Transmission Date: 20180711
  Serious: Yes (Other)
  Sender: FDA-Public Use
  Company Number: CN-SUN PHARMACEUTICAL INDUSTRIES LTD-2018R1-175254

PATIENT
  Age: 37 Year
  Sex: Male

DRUGS (1)
  1. IMATINIB [Suspect]
     Active Substance: IMATINIB
     Indication: DERMATOFIBROSARCOMA PROTUBERANS
     Route: 048

REACTIONS (4)
  - Therapeutic response decreased [Unknown]
  - Neoplasm progression [Unknown]
  - Pancreatic carcinoma [Unknown]
  - Condition aggravated [Unknown]
